FAERS Safety Report 17919656 (Version 2)
Quarter: 2020Q2

REPORT INFORMATION
  Report Type: Spontaneous
  Country: FR (occurrence: FR)
  Receive Date: 20200619
  Receipt Date: 20200627
  Transmission Date: 20200714
  Serious: Yes (Other)
  Sender: FDA-Public Use
  Company Number: NVSC2020FR172046

PATIENT
  Age: 87 Year
  Sex: Female
  Weight: 56 kg

DRUGS (1)
  1. EXELON PATCH [Suspect]
     Active Substance: RIVASTIGMINE
     Indication: DEMENTIA
     Dosage: 1 DF, QD
     Route: 062
     Dates: start: 20170809

REACTIONS (3)
  - Hallucination [Not Recovered/Not Resolved]
  - Condition aggravated [Not Recovered/Not Resolved]
  - Behaviour disorder [Not Recovered/Not Resolved]

NARRATIVE: CASE EVENT DATE: 201910
